FAERS Safety Report 22123256 (Version 1)
Quarter: 2023Q1

REPORT INFORMATION
  Report Type: Spontaneous
  Country: UA (occurrence: UA)
  Receive Date: 20230322
  Receipt Date: 20230322
  Transmission Date: 20230418
  Serious: Yes (Life-Threatening, Hospitalization, Other)
  Sender: FDA-Public Use
  Company Number: UA-BRISTOL-MYERS SQUIBB COMPANY-2023-037228

PATIENT
  Age: 38 Year
  Sex: Male

DRUGS (4)
  1. OPDIVO [Suspect]
     Active Substance: NIVOLUMAB
     Indication: Malignant melanoma
     Route: 042
     Dates: start: 20220527
  2. OPDIVO [Suspect]
     Active Substance: NIVOLUMAB
     Dosage: MONOTHERAPY
     Dates: start: 20221205, end: 20230213
  3. YERVOY [Suspect]
     Active Substance: IPILIMUMAB
     Indication: Malignant melanoma
     Route: 042
     Dates: start: 20220527
  4. DIPHTHERIA AND TETANUS TOXOIDS AND PERTUSSIS VACCINE ADSORBED NOS [Suspect]
     Active Substance: DIPHTHERIA AND TETANUS TOXOIDS AND PERTUSSIS VACCINE
     Indication: Product used for unknown indication
     Dates: start: 20220614

REACTIONS (4)
  - Blood pressure increased [Unknown]
  - Seizure [Unknown]
  - Hyperthermia [Unknown]
  - Hypotension [Unknown]

NARRATIVE: CASE EVENT DATE: 20220614
